FAERS Safety Report 5823929-6 (Version None)
Quarter: 2008Q3

REPORT INFORMATION
  Report Type: 
  Country: None (occurrence: None)
  Receive Date: 20080724
  Receipt Date: 20080715
  Transmission Date: 20090109
  Serious: Yes (Other)
  Sender: FDA-Public Use
  Company Number: 2008AP001747

PATIENT

DRUGS (1)
  1. PAROXETINE HCL [Suspect]
     Indication: DEPRESSION
     Dosage: PO
     Route: 048

REACTIONS (11)
  - ANXIETY [None]
  - DYSURIA [None]
  - HYPERSOMNIA [None]
  - INSOMNIA [None]
  - NAUSEA [None]
  - RASH [None]
  - RESTLESSNESS [None]
  - SEXUAL DYSFUNCTION [None]
  - TINNITUS [None]
  - VOMITING [None]
  - WEIGHT INCREASED [None]
